FAERS Safety Report 10861262 (Version 1)
Quarter: 2015Q1

REPORT INFORMATION
  Report Type: Spontaneous
  Country: US (occurrence: US)
  Receive Date: 20150224
  Receipt Date: 20150224
  Transmission Date: 20150721
  Serious: Yes (Death)
  Sender: FDA-Public Use
  Company Number: US-BANPHARM-20153464

PATIENT
  Age: 41 Year
  Sex: Female

DRUGS (6)
  1. TIZANIDINE (TIZANIDINE) [Suspect]
     Active Substance: TIZANIDINE
  2. QUETIAPINE [Suspect]
     Active Substance: QUETIAPINE
  3. BENZONATATE UNKNOWN PRODUCT [Suspect]
     Active Substance: BENZONATATE
     Route: 048
  4. AMITRIPTYLINE [Suspect]
     Active Substance: AMITRIPTYLINE
  5. GABAPENTIN. [Suspect]
     Active Substance: GABAPENTIN
  6. DULOXETINE [Suspect]
     Active Substance: DULOXETINE

REACTIONS (2)
  - Death [Fatal]
  - Exposure via ingestion [None]
